FAERS Safety Report 7322960-1 (Version None)
Quarter: 2011Q1

REPORT INFORMATION
  Report Type: 
  Country: None (occurrence: None)
  Receive Date: 20110301
  Receipt Date: 20110218
  Transmission Date: 20110831
  Serious: Yes (Other)
  Sender: FDA-Public Use
  Company Number: PHHY2011CA13748

PATIENT
  Sex: Female

DRUGS (6)
  1. ACLASTA [Suspect]
     Indication: OSTEOPOROSIS
     Dosage: UNK
     Dates: start: 20090618
  2. CALCIUM [Concomitant]
  3. IRON [Concomitant]
  4. ASCORBIC ACID [Concomitant]
  5. ACLASTA [Suspect]
     Dosage: UNK
     Dates: start: 20100610
  6. VITAMIN D [Concomitant]

REACTIONS (1)
  - HAEMORRHAGE [None]
